FAERS Safety Report 5474455-8 (Version None)
Quarter: 2007Q3

REPORT INFORMATION
  Report Type: 
  Country: None (occurrence: None)
  Receive Date: 20070928
  Receipt Date: 20070928
  Transmission Date: 20080115
  Serious: Yes (Hospitalization)
  Sender: FDA-Public Use
  Company Number: None

PATIENT
  Age: 77 Year
  Sex: Male

DRUGS (1)
  1. ASPIRIN [Suspect]
     Indication: PAIN
     Dates: start: 20010108

REACTIONS (2)
  - GASTROINTESTINAL HAEMORRHAGE [None]
  - INCORRECT DOSE ADMINISTERED [None]
